FAERS Safety Report 23263734 (Version 1)
Quarter: 2023Q4

REPORT INFORMATION
  Report Type: Report from Study
  Country: NL (occurrence: NL)
  Receive Date: 20231205
  Receipt Date: 20231205
  Transmission Date: 20240109
  Serious: Yes (Other)
  Sender: FDA-Public Use
  Company Number: NL-PFIZER INC-PV202300195126

PATIENT

DRUGS (1)
  1. CRIZOTINIB [Suspect]
     Active Substance: CRIZOTINIB
     Dosage: 250 MG, 2X/DAY
     Dates: end: 20230920

REACTIONS (2)
  - Renal impairment [Recovered/Resolved]
  - Diarrhoea [Recovered/Resolved]
